FAERS Safety Report 9051256 (Version 2)
Quarter: 2013Q1

REPORT INFORMATION
  Report Type: Spontaneous
  Country: FR (occurrence: FR)
  Receive Date: 20130206
  Receipt Date: 20130207
  Transmission Date: 20140127
  Serious: Yes (Hospitalization, Other)
  Sender: FDA-Public Use
  Company Number: FR-JNJFOC-20130201072

PATIENT
  Age: 85 None
  Sex: Male

DRUGS (6)
  1. XARELTO [Suspect]
     Indication: CEREBROVASCULAR ACCIDENT PROPHYLAXIS
     Route: 048
     Dates: start: 201209
  2. XARELTO [Suspect]
     Indication: ATRIAL FIBRILLATION
     Route: 048
     Dates: start: 201209
  3. HEMIGOXINE [Concomitant]
     Route: 065
  4. SPECIAFOLDINE [Concomitant]
     Route: 065
  5. ALEPSAL [Concomitant]
     Route: 065
  6. CYANOCOBALAMIN [Concomitant]
     Route: 065

REACTIONS (1)
  - Anaemia [Recovered/Resolved]
